FAERS Safety Report 17033630 (Version 11)
Quarter: 2020Q3

REPORT INFORMATION
  Report Type: Spontaneous
  Country: US (occurrence: US)
  Receive Date: 20191114
  Receipt Date: 20200701
  Transmission Date: 20201102
  Serious: Yes (Other)
  Sender: FDA-Public Use
  Company Number: US-PFIZER INC-2019494196

PATIENT
  Age: 67 Year
  Sex: Female
  Weight: 81.18 kg

DRUGS (19)
  1. LYRICA [Suspect]
     Active Substance: PREGABALIN
     Dosage: 100 MG, 4X/DAY
  2. ASPIRIN [ACETYLSALICYLIC ACID] [Concomitant]
     Active Substance: ASPIRIN
     Dosage: 1 DF, UNK
  3. LYRICA [Suspect]
     Active Substance: PREGABALIN
     Dosage: 100 MG, 3X/DAY
     Route: 048
  4. AMLODIPINE [Concomitant]
     Active Substance: AMLODIPINE BESYLATE
     Indication: HYPERTENSION
     Dosage: 10 MG, 1X/DAY [EVERY NIGHT]
  5. CLONIDINE. [Concomitant]
     Active Substance: CLONIDINE
     Indication: HYPERTENSION
     Dosage: 0.3 MG, 3X/DAY
  6. LYRICA [Suspect]
     Active Substance: PREGABALIN
     Indication: TRIGEMINAL NEURALGIA
     Dosage: 200 MG, 3X/DAY
     Dates: start: 2019
  7. LYRICA [Suspect]
     Active Substance: PREGABALIN
     Dosage: 200 MG, 3X/DAY
     Route: 048
  8. DICYCLOMINE [Concomitant]
     Active Substance: DICYCLOMINE HYDROCHLORIDE
     Indication: MUSCLE SPASMS
     Dosage: 10 MG, 4X/DAY (AS NEEDED)
  9. PANTOPRAZOLE [Concomitant]
     Active Substance: PANTOPRAZOLE
     Indication: ULCER
     Dosage: 40 MG, 1X/DAY
  10. HYDROCHLOROTHIAZIDE. [Concomitant]
     Active Substance: HYDROCHLOROTHIAZIDE
     Indication: HYPERTENSION
     Dosage: 25 MG, DAILY
  11. SIMVASTATIN. [Concomitant]
     Active Substance: SIMVASTATIN
     Dosage: 20 MG, 1X/DAY [AT BED TIME]
     Route: 048
  12. LYRICA [Suspect]
     Active Substance: PREGABALIN
     Dosage: 1 DF, 4X/DAY
  13. LYRICA [Suspect]
     Active Substance: PREGABALIN
     Dosage: 200 MG, 1X/DAY
  14. CLOPIDOGREL [Concomitant]
     Active Substance: CLOPIDOGREL BISULFATE
     Indication: TRANSIENT ISCHAEMIC ATTACK
     Dosage: 75 MG, DAILY
  15. CARBAMAZEPINE. [Concomitant]
     Active Substance: CARBAMAZEPINE
     Dosage: 600 MG
  16. LYRICA [Suspect]
     Active Substance: PREGABALIN
     Dosage: 2 DF, UNK
  17. LYRICA [Suspect]
     Active Substance: PREGABALIN
     Dosage: 200 MG, 2X/DAY
  18. LYRICA [Suspect]
     Active Substance: PREGABALIN
     Dosage: 400 MG, 4X/DAY
  19. LOSARTAN. [Concomitant]
     Active Substance: LOSARTAN
     Indication: BLOOD PRESSURE MANAGEMENT
     Dosage: 100 MG, DAILY
     Route: 048

REACTIONS (24)
  - Drug ineffective [Unknown]
  - Prescribed overdose [Unknown]
  - Peripheral swelling [Unknown]
  - Suicidal ideation [Unknown]
  - Feeling abnormal [Unknown]
  - Glossodynia [Unknown]
  - Abdominal discomfort [Unknown]
  - Product dose omission issue [Unknown]
  - Burning sensation [Unknown]
  - Aphasia [Unknown]
  - Weight increased [Unknown]
  - Facial pain [Unknown]
  - Oral pain [Unknown]
  - Increased appetite [Unknown]
  - Paraesthesia [Unknown]
  - Pain [Unknown]
  - Feeling hot [Unknown]
  - Pruritus [Unknown]
  - Fibromyalgia [Unknown]
  - Diabetes mellitus [Unknown]
  - Sensitivity to weather change [Unknown]
  - Vision blurred [Unknown]
  - Visual impairment [Unknown]
  - Polyp [Unknown]
